FAERS Safety Report 5407809-6 (Version None)
Quarter: 2007Q3

REPORT INFORMATION
  Report Type: 
  Country: None (occurrence: None)
  Receive Date: 20070803
  Receipt Date: 20070730
  Transmission Date: 20080115
  Serious: Yes (Other)
  Sender: FDA-Public Use
  Company Number: 2007BI016089

PATIENT
  Sex: Female

DRUGS (1)
  1. AVONEX [Suspect]
     Indication: MULTIPLE SCLEROSIS
     Dosage: 30; UG; QW; IM
     Route: 030
     Dates: start: 20000105

REACTIONS (3)
  - FATIGUE [None]
  - LUNG DISORDER [None]
  - TREMOR [None]
